FAERS Safety Report 9319968 (Version 6)
Quarter: 2013Q3

REPORT INFORMATION
  Report Type: Spontaneous
  Country: US (occurrence: US)
  Receive Date: 20130530
  Receipt Date: 20130905
  Transmission Date: 20140515
  Serious: Yes (Hospitalization, Other)
  Sender: FDA-Public Use
  Company Number: US-AMGEN-USASP2013038072

PATIENT
  Age: 71 Year
  Sex: Female

DRUGS (2)
  1. ENBREL [Suspect]
     Indication: PSORIATIC ARTHROPATHY
     Dosage: 50 MG, QWK
     Route: 065
     Dates: start: 20120615
  2. ENBREL [Suspect]
     Dosage: UNK
     Route: 065

REACTIONS (31)
  - Traumatic amputation [Not Recovered/Not Resolved]
  - Road traffic accident [Recovered/Resolved]
  - Anxiety [Not Recovered/Not Resolved]
  - Nervousness [Not Recovered/Not Resolved]
  - Mobility decreased [Not Recovered/Not Resolved]
  - Musculoskeletal stiffness [Not Recovered/Not Resolved]
  - Amputation stump pain [Not Recovered/Not Resolved]
  - Tooth loss [Not Recovered/Not Resolved]
  - Temporomandibular joint syndrome [Not Recovered/Not Resolved]
  - Joint stiffness [Not Recovered/Not Resolved]
  - Sleep disorder [Recovered/Resolved]
  - Feeling cold [Not Recovered/Not Resolved]
  - Fatigue [Not Recovered/Not Resolved]
  - Hypersomnia [Not Recovered/Not Resolved]
  - Abdominal discomfort [Not Recovered/Not Resolved]
  - Nausea [Not Recovered/Not Resolved]
  - Feeling abnormal [Not Recovered/Not Resolved]
  - Limb discomfort [Not Recovered/Not Resolved]
  - Memory impairment [Not Recovered/Not Resolved]
  - Malaise [Not Recovered/Not Resolved]
  - Pain [Not Recovered/Not Resolved]
  - Sensation of pressure [Not Recovered/Not Resolved]
  - Pelvic pain [Not Recovered/Not Resolved]
  - Genital pain [Not Recovered/Not Resolved]
  - Proctalgia [Not Recovered/Not Resolved]
  - Muscle disorder [Not Recovered/Not Resolved]
  - Gastrointestinal disorder [Not Recovered/Not Resolved]
  - Hypoaesthesia [Not Recovered/Not Resolved]
  - Hot flush [Not Recovered/Not Resolved]
  - Confusional state [Not Recovered/Not Resolved]
  - Insomnia [Not Recovered/Not Resolved]
